FAERS Safety Report 8044138-9 (Version None)
Quarter: 2012Q1

REPORT INFORMATION
  Report Type: 
  Country: None (occurrence: None)
  Receive Date: 20120113
  Receipt Date: 20120110
  Transmission Date: 20120608
  Serious: Yes (Hospitalization, Other)
  Sender: FDA-Public Use
  Company Number: PHEH2011US011895

PATIENT
  Sex: Male
  Weight: 80 kg

DRUGS (5)
  1. TOBI [Suspect]
     Indication: LUNG DISORDER
  2. PULMOZYME [Concomitant]
     Indication: LUNG DISORDER
     Dosage: UNK
     Dates: start: 20001201
  3. ADVAIR DISKUS 100/50 [Concomitant]
     Indication: LUNG DISORDER
     Dosage: UNK
     Dates: start: 20070101
  4. TOBI [Suspect]
     Indication: CYSTIC FIBROSIS
     Dosage: 300 MG, QD
     Dates: start: 20111201, end: 20111228
  5. CREON [Concomitant]
     Indication: DYSPEPSIA

REACTIONS (2)
  - VIRAL INFECTION [None]
  - VIITH NERVE PARALYSIS [None]
